FAERS Safety Report 15476900 (Version 2)
Quarter: 2018Q4

REPORT INFORMATION
  Report Type: Spontaneous
  Country: US (occurrence: US)
  Receive Date: 20181009
  Receipt Date: 20181011
  Transmission Date: 20190205
  Serious: Yes (Life-Threatening, Hospitalization, Other)
  Sender: FDA-Public Use
  Company Number: US-ROCHE-2192632

PATIENT
  Age: 72 Year
  Sex: Female

DRUGS (1)
  1. ACTILYSE [Suspect]
     Active Substance: ALTEPLASE
     Indication: CEREBROVASCULAR ACCIDENT
     Dosage: COMPLETED FULL DOSE OF 0.9 MG/KG
     Route: 042

REACTIONS (8)
  - Staphylococcal infection [Unknown]
  - Thalamic infarction [Unknown]
  - Bacteriuria [Unknown]
  - Cerebellar infarction [Unknown]
  - Tremor [Unknown]
  - Cerebrovascular accident [Unknown]
  - Escherichia infection [Unknown]
  - Vomiting [Unknown]
